FAERS Safety Report 7278944-5 (Version None)
Quarter: 2011Q1

REPORT INFORMATION
  Report Type: 
  Country: None (occurrence: None)
  Receive Date: 20110207
  Receipt Date: 20110125
  Transmission Date: 20110831
  Serious: Yes (Hospitalization)
  Sender: FDA-Public Use
  Company Number: PHHY2011US05674

PATIENT
  Sex: Female

DRUGS (3)
  1. CYMBALTA [Concomitant]
     Dosage: 600 MG, QD
  2. NEURONTIN [Concomitant]
     Dosage: 100 MG, TID
  3. RECLAST [Suspect]
     Indication: OSTEOPOROSIS
     Dosage: 5 MG/100 ML ONCE YEARLY
     Route: 042
     Dates: start: 20101201

REACTIONS (7)
  - BLOOD CREATINE PHOSPHOKINASE INCREASED [None]
  - C-REACTIVE PROTEIN INCREASED [None]
  - PAIN [None]
  - ASTHENIA [None]
  - INFLUENZA LIKE ILLNESS [None]
  - CONFUSIONAL STATE [None]
  - BLOOD BILIRUBIN INCREASED [None]
